FAERS Safety Report 17460013 (Version 2)
Quarter: 2020Q1

REPORT INFORMATION
  Report Type: Report from Study
  Country: US (occurrence: US)
  Receive Date: 20200226
  Receipt Date: 20200302
  Transmission Date: 20200409
  Serious: Yes (Hospitalization)
  Sender: FDA-Public Use
  Company Number: US-ROCHE-2555870

PATIENT
  Age: 76 Year
  Sex: Male
  Weight: 82.5 kg

DRUGS (11)
  1. GLUCOSAMINE [Concomitant]
     Active Substance: GLUCOSAMINE
  2. MULTIPLE VITAMINS [Concomitant]
     Active Substance: VITAMINS
  3. CABOZANTINIB [Suspect]
     Active Substance: CABOZANTINIB
     Indication: METASTATIC NEOPLASM
     Route: 048
     Dates: start: 20180910
  4. DOXYCYCLINE HYCLATE. [Concomitant]
     Active Substance: DOXYCYCLINE HYCLATE
  5. TRIAMCINOLONE [Concomitant]
     Active Substance: TRIAMCINOLONE
  6. FINASTERIDE. [Concomitant]
     Active Substance: FINASTERIDE
  7. DOXEPIN [Concomitant]
     Active Substance: DOXEPIN
  8. TAMSULOSIN HCL [Concomitant]
     Active Substance: TAMSULOSIN HYDROCHLORIDE
  9. CHOLECALCIFEROL [Concomitant]
     Active Substance: CHOLECALCIFEROL
  10. ATEZOLIZUMAB. [Suspect]
     Active Substance: ATEZOLIZUMAB
     Indication: METASTATIC NEOPLASM
     Route: 041
     Dates: start: 20180910
  11. VIT D [Concomitant]
     Active Substance: VITAMIN D NOS

REACTIONS (1)
  - Pulmonary embolism [Not Recovered/Not Resolved]

NARRATIVE: CASE EVENT DATE: 20200211
